FAERS Safety Report 21323713 (Version 1)
Quarter: 2022Q3

REPORT INFORMATION
  Report Type: Spontaneous
  Country: US (occurrence: US)
  Receive Date: 20220912
  Receipt Date: 20220912
  Transmission Date: 20221027
  Serious: No
  Sender: FDA-Public Use
  Company Number: US-ORGANON-O2208USA002326

PATIENT
  Age: 21 Year
  Sex: Female
  Weight: 127 kg

DRUGS (3)
  1. NEXPLANON [Suspect]
     Active Substance: ETONOGESTREL
     Indication: Contraception
     Dosage: 1 IMPLANT OF 68MG (LEFT ARM)
     Route: 059
     Dates: start: 20200908, end: 20220826
  2. OMEPRAZOLE [Concomitant]
     Active Substance: OMEPRAZOLE
     Dosage: UNK
  3. FLONASE [Concomitant]
     Active Substance: FLUTICASONE PROPIONATE
     Dosage: UNK

REACTIONS (7)
  - Breast discharge [Unknown]
  - Implant site pain [Unknown]
  - Pain in extremity [Unknown]
  - Menstruation irregular [Unknown]
  - Weight decreased [Unknown]
  - Device issue [Recovered/Resolved]
  - Complication associated with device [Recovered/Resolved]

NARRATIVE: CASE EVENT DATE: 20220224
